FAERS Safety Report 24002163 (Version 5)
Quarter: 2025Q2

REPORT INFORMATION
  Report Type: Report from Study
  Country: US (occurrence: US)
  Receive Date: 20240622
  Receipt Date: 20250508
  Transmission Date: 20250717
  Serious: No
  Sender: AMGEN
  Company Number: US-AMGEN-USASP2024122291

PATIENT
  Age: 77 Year
  Sex: Male

DRUGS (1)
  1. TEPEZZA [Suspect]
     Active Substance: TEPROTUMUMAB-TRBW
     Indication: Endocrine ophthalmopathy
     Dosage: 1X Q3WK  FOR 8 INFUSIONS
     Route: 042
     Dates: start: 20240207, end: 20240710

REACTIONS (3)
  - Therapy non-responder [Unknown]
  - Hypoacusis [Not Recovered/Not Resolved]
  - Tinnitus [Unknown]
